FAERS Safety Report 6701731-0 (Version None)
Quarter: 2010Q2

REPORT INFORMATION
  Report Type: 
  Country: None (occurrence: None)
  Receive Date: 20100429
  Receipt Date: 20100420
  Transmission Date: 20101027
  Serious: Yes (Hospitalization)
  Sender: FDA-Public Use
  Company Number: PHHY2010DE25968

PATIENT
  Age: 6 Year
  Sex: Female

DRUGS (1)
  1. VOLTAREN [Suspect]
     Dosage: CONTENST OF 16 CAPSULES AT ONCE
     Route: 048

REACTIONS (1)
  - ACCIDENTAL DRUG INTAKE BY CHILD [None]
